FAERS Safety Report 17375840 (Version 1)
Quarter: 2020Q1

REPORT INFORMATION
  Report Type: Spontaneous
  Country: JP (occurrence: JP)
  Receive Date: 20200206
  Receipt Date: 20200206
  Transmission Date: 20200409
  Serious: Yes (Other)
  Sender: FDA-Public Use
  Company Number: JP-ACCORD-171629

PATIENT
  Age: 63 Year
  Sex: Female

DRUGS (2)
  1. FLUOROURACIL. [Suspect]
     Active Substance: FLUOROURACIL
     Indication: METASTASES TO SKIN
     Dosage: 1,000 MG/M2 ON DAYS 1-4 AND 29-32
  2. MITOMYCIN. [Suspect]
     Active Substance: MITOMYCIN
     Indication: METASTASES TO SKIN
     Dosage: 10 MG/M2 ON DAY 1, 29

REACTIONS (4)
  - Radiation skin injury [Unknown]
  - Proctalgia [Unknown]
  - Leukopenia [Unknown]
  - Thrombocytopenia [Unknown]
